FAERS Safety Report 18011619 (Version 3)
Quarter: 2020Q4

REPORT INFORMATION
  Report Type: Report from Study
  Country: None (occurrence: US)
  Receive Date: 20200713
  Receipt Date: 20201125
  Transmission Date: 20210113
  Serious: Yes (Hospitalization)
  Sender: FDA-Public Use
  Company Number: US-ABBVIE-20K-163-3475344-00

PATIENT
  Sex: Male

DRUGS (2)
  1. VENCLEXTA [Suspect]
     Active Substance: VENETOCLAX
     Indication: MYELOID LEUKAEMIA
     Dosage: 100MG TABLETS FOUR TIMES DAILY
     Route: 048
  2. VENCLEXTA [Suspect]
     Active Substance: VENETOCLAX
     Indication: ACUTE MYELOID LEUKAEMIA
     Dosage: 100MG DAILY FOR 14 DAYS ON, 14 DAYS OFF
     Route: 048
     Dates: start: 202006

REACTIONS (7)
  - Weight decreased [Unknown]
  - Hypophagia [Unknown]
  - Urinary tract infection [Unknown]
  - Intestinal obstruction [Unknown]
  - Pain in extremity [Unknown]
  - Exostosis [Unknown]
  - Dehydration [Unknown]
